FAERS Safety Report 13977973 (Version 1)
Quarter: 2017Q3

REPORT INFORMATION
  Report Type: Spontaneous
  Country: BE (occurrence: BE)
  Receive Date: 20170915
  Receipt Date: 20170915
  Transmission Date: 20171128
  Serious: Yes (Hospitalization)
  Sender: FDA-Public Use
  Company Number: BE-SA-2017SA166841

PATIENT
  Age: 70 Year
  Sex: Female

DRUGS (1)
  1. CLEXANE [Suspect]
     Active Substance: ENOXAPARIN SODIUM
     Indication: ANTICOAGULANT THERAPY
     Dosage: SYRINGE

REACTIONS (5)
  - Migraine [Recovered/Resolved]
  - Loss of consciousness [Unknown]
  - Condition aggravated [Unknown]
  - Internal haemorrhage [Unknown]
  - Cerebrovascular accident [Unknown]
